FAERS Safety Report 4764849-8 (Version None)
Quarter: 2005Q3

REPORT INFORMATION
  Report Type: 
  Country: None (occurrence: None)
  Receive Date: 20050907
  Receipt Date: 20050826
  Transmission Date: 20060218
  Serious: Yes (Death)
  Sender: FDA-Public Use
  Company Number: 200512657GDS

PATIENT
  Age: 70 Year
  Sex: Female

DRUGS (4)
  1. ASPIRIN [Suspect]
     Dosage: ONCE, ORAL
     Route: 048
     Dates: start: 20050801
  2. DIURETICS [Suspect]
  3. DIGESTIVE (UNCODEABLE ^UNCLASSIFIABLE^) [Suspect]
  4. HORMON DRUG (HORMONES AND RELATED AGENTS) [Suspect]
     Dosage: ORAL
     Route: 048

REACTIONS (2)
  - DRUG PRESCRIBING ERROR [None]
  - DYSPNOEA EXACERBATED [None]
